FAERS Safety Report 21236894 (Version 2)
Quarter: 2022Q4

REPORT INFORMATION
  Report Type: Spontaneous
  Country: MX (occurrence: MX)
  Receive Date: 20220822
  Receipt Date: 20221007
  Transmission Date: 20230113
  Serious: Yes (Other)
  Sender: FDA-Public Use
  Company Number: MX-NOVOPROD-948895

PATIENT
  Age: 66 Year
  Sex: Female
  Weight: 82 kg

DRUGS (4)
  1. RYZODEG 70/30 [Suspect]
     Active Substance: INSULIN ASPART\INSULIN DEGLUDEC
     Indication: Type 2 diabetes mellitus
     Dosage: 41 IU, QD (CHANGE ACCORDING TO SUGAR LEVELS)
     Dates: start: 20220524
  2. LINAGLIPTIN [Concomitant]
     Active Substance: LINAGLIPTIN
     Indication: Product used for unknown indication
     Dosage: 5 MG, QD(AT BREAKFAST)
  3. JARDIANCE [Concomitant]
     Active Substance: EMPAGLIFLOZIN
     Indication: Product used for unknown indication
     Dosage: 10 MG, QD(AT BREAKFAST)
  4. LOSARTAN [Concomitant]
     Active Substance: LOSARTAN
     Indication: Hypertension
     Dosage: 50 MG, BID

REACTIONS (2)
  - Lower limb fracture [Recovering/Resolving]
  - Fall [Recovered/Resolved]

NARRATIVE: CASE EVENT DATE: 20220727
